FAERS Safety Report 9746420 (Version 2)
Quarter: 2013Q4

REPORT INFORMATION
  Report Type: Spontaneous
  Country: FR (occurrence: FR)
  Receive Date: 20131211
  Receipt Date: 20131218
  Transmission Date: 20140711
  Serious: Yes (Hospitalization)
  Sender: FDA-Public Use
  Company Number: FR-GLAXOSMITHKLINE-B0951730A

PATIENT
  Age: 73 Year
  Sex: Male

DRUGS (8)
  1. DEROXAT [Suspect]
     Indication: PRODUCT USED FOR UNKNOWN INDICATION
     Dosage: 20MG PER DAY
     Route: 048
     Dates: start: 201310
  2. KARDEGIC [Concomitant]
     Dosage: 75MG PER DAY
     Route: 048
  3. OMEPRAZOLE [Concomitant]
     Dosage: 20MG PER DAY
     Route: 048
  4. PROCORALAN [Concomitant]
     Dosage: 5MG TWICE PER DAY
     Route: 048
  5. SIMVASTATIN [Concomitant]
     Dosage: 10MG PER DAY
     Route: 048
  6. LAROXYL [Concomitant]
     Dosage: 3DROP PER DAY
     Route: 048
  7. TRINITRINE [Concomitant]
     Dosage: 5MG UNKNOWN
     Route: 062
  8. ZOXAN [Concomitant]
     Dosage: 8MG PER DAY
     Route: 048

REACTIONS (6)
  - Hyponatraemia [Recovering/Resolving]
  - Balance disorder [Unknown]
  - Psychomotor retardation [Unknown]
  - Constipation [Unknown]
  - Urinary retention [Unknown]
  - Inappropriate antidiuretic hormone secretion [Unknown]
